FAERS Safety Report 8342549 (Version 2)
Quarter: 2013Q2

REPORT INFORMATION
  Report Type: Spontaneous
  Country: US (occurrence: None)
  Receive Date: 20111202
  Receipt Date: 20121203
  Transmission Date: 20140414
  Serious: Yes (Other)
  Sender: FDA-Public Use
  Company Number: 2010SP065553

PATIENT
  Age: 22 Year
  Sex: Female
  Weight: 58.97 kg

DRUGS (1)
  1. NUVARING [Suspect]
     Indication: CONTRACEPTION
     Dates: start: 200408, end: 200901

REACTIONS (12)
  - DEEP VEIN THROMBOSIS [None]
  - BLOOD DISORDER [None]
  - TONSILLECTOMY [None]
  - PLANTAR FASCIITIS [None]
  - BURSITIS [None]
  - MIGRAINE [None]
  - WEIGHT INCREASED [None]
  - HYPERCOAGULATION [None]
  - Anogenital warts [None]
  - Papilloma viral infection [None]
  - Chlamydial infection [None]
  - Amenorrhoea [None]
